FAERS Safety Report 6996936-8 (Version None)
Quarter: 2010Q3

REPORT INFORMATION
  Report Type: 
  Country: None (occurrence: None)
  Receive Date: 20100918
  Receipt Date: 20091005
  Transmission Date: 20110219
  Serious: No
  Sender: FDA-Public Use
  Company Number: US-WYE-H10641409

PATIENT
  Sex: Female
  Weight: 59.02 kg

DRUGS (3)
  1. EFFEXOR XR [Suspect]
     Indication: DEPRESSION
     Route: 048
     Dates: start: 20090808, end: 20090812
  2. EFFEXOR XR [Suspect]
     Dosage: 75 MG (FREQUENCY UNKNOWN)
     Route: 048
     Dates: start: 20091001
  3. LAMICTAL [Concomitant]

REACTIONS (7)
  - ANXIETY [None]
  - DECREASED APPETITE [None]
  - DIZZINESS [None]
  - DRY MOUTH [None]
  - DYSSTASIA [None]
  - INSOMNIA [None]
  - WEIGHT DECREASED [None]
